FAERS Safety Report 12824883 (Version 4)
Quarter: 2016Q4

REPORT INFORMATION
  Report Type: Report from Study
  Country: GT (occurrence: GT)
  Receive Date: 20161007
  Receipt Date: 20161223
  Transmission Date: 20170207
  Serious: Yes (Death, Hospitalization)
  Sender: FDA-Public Use
  Company Number: GT-B.I. PHARMACEUTICALS,INC./RIDGEFIELD-2016-BI-08445BI

PATIENT
  Age: 84 Year
  Sex: Male
  Weight: 70.95 kg

DRUGS (3)
  1. ENALAPRIL [Concomitant]
     Active Substance: ENALAPRIL
     Indication: HYPERTENSION
     Route: 048
     Dates: start: 2004
  2. BLINDED TIOTROPIUM BROMIDE+OLODATEROL [Suspect]
     Active Substance: OLODATEROL HYDROCHLORIDE\TIOTROPIUM BROMIDE MONOHYDRATE
     Indication: CHRONIC OBSTRUCTIVE PULMONARY DISEASE
     Route: 048
     Dates: start: 20150914, end: 20160907
  3. BUDESONIDE. [Concomitant]
     Active Substance: BUDESONIDE
     Indication: CHRONIC OBSTRUCTIVE PULMONARY DISEASE
     Route: 048
     Dates: start: 20150521

REACTIONS (3)
  - Abdominal pain [Unknown]
  - Nephropathy [Not Recovered/Not Resolved]
  - Infective exacerbation of chronic obstructive airways disease [Fatal]

NARRATIVE: CASE EVENT DATE: 20160307
